FAERS Safety Report 9504692 (Version 1)
Quarter: 2013Q1

REPORT INFORMATION
  Report Type: Spontaneous
  Country: US (occurrence: None)
  Receive Date: 20130225
  Receipt Date: 20130225
  Transmission Date: 20140127
  Serious: Yes (Other)
  Sender: FDA-Public Use
  Company Number: 2012-19586

PATIENT
  Age: 57 Year
  Sex: Female

DRUGS (1)
  1. INFED (WATSON LABORATORIES) [Suspect]
     Indication: ANAEMIA
     Route: 042
     Dates: start: 20120831, end: 20120831

REACTIONS (14)
  - Anaphylactic reaction [None]
  - Decreased appetite [None]
  - Fatigue [None]
  - Myalgia [None]
  - Malaise [None]
  - Somnolence [None]
  - Nausea [None]
  - Chills [None]
  - Dizziness [None]
  - Headache [None]
  - Dyspnoea [None]
  - Urticaria [None]
  - Pruritus [None]
  - Flushing [None]
